FAERS Safety Report 7607914-X (Version None)
Quarter: 2011Q3

REPORT INFORMATION
  Report Type: 
  Country: None (occurrence: None)
  Receive Date: 20110714
  Receipt Date: 20090319
  Transmission Date: 20111222
  Serious: Yes (Other)
  Sender: FDA-Public Use
  Company Number: US-BAYER-200915931NA

PATIENT
  Age: 69 Year
  Sex: Male
  Weight: 64.399 kg

DRUGS (17)
  1. LISINOPRIL [Concomitant]
     Dosage: 20 MG, UNK
     Route: 048
  2. MANNITOL [Concomitant]
  3. IMDUR [Concomitant]
     Dosage: 60 MG, QD
     Route: 048
  4. LIPITOR [Concomitant]
     Dosage: 80 MG, UNK
     Route: 048
  5. TOPROL-XL [Concomitant]
     Dosage: 50 MG, QD
     Route: 048
  6. PRILOSEC [Concomitant]
     Dosage: 20 MG, QD
     Route: 048
  7. HEPARIN [Concomitant]
  8. TRASYLOL [Suspect]
     Indication: CORONARY ARTERY BYPASS
     Dosage: ILLEGIBLE LOADING DOSE THEN 50 ML/HOUR INFUSION
     Dates: start: 20060731
  9. LIPITOR [Concomitant]
     Dosage: 40 MG, QD
     Route: 048
  10. PLAVIX [Concomitant]
     Route: 048
  11. MUCOMYST [Concomitant]
  12. NORVASC [Concomitant]
     Dosage: 10 MG, UNK
     Route: 048
  13. ACETYLSALICYLIC ACID SRT [Concomitant]
     Route: 048
  14. METOPROLOL SUCCINATE [Concomitant]
     Dosage: 50 MG, QD
     Route: 048
  15. FENTANYL [Concomitant]
  16. LORCET-HD [Concomitant]
     Dosage: 1-3 DAILY AS NEEDED FOR PAIN
     Route: 048
  17. NITROGLYCERIN [Concomitant]

REACTIONS (10)
  - INJURY [None]
  - MULTI-ORGAN FAILURE [None]
  - EMOTIONAL DISTRESS [None]
  - ANXIETY [None]
  - PAIN [None]
  - ANHEDONIA [None]
  - RENAL FAILURE [None]
  - STRESS [None]
  - UNEVALUABLE EVENT [None]
  - FEAR [None]
